FAERS Safety Report 10056492 (Version 1)
Quarter: 2014Q2

REPORT INFORMATION
  Report Type: Report from Study
  Country: CZ (occurrence: CZ)
  Receive Date: 20140403
  Receipt Date: 20140403
  Transmission Date: 20141212
  Serious: Yes (Other)
  Sender: FDA-Public Use
  Company Number: CZ-PFIZER INC-2014092331

PATIENT
  Sex: Male

DRUGS (3)
  1. SUTENT [Suspect]
     Indication: RENAL CELL CARCINOMA
     Dosage: 37.5 MG, CYCLIC (1X/DAY 4 WEEKS ON/2WEEKS OFF)
     Route: 048
     Dates: start: 201309
  2. SUTENT [Suspect]
     Dosage: 50 MG, CYCLIC (1X/DAY 4 WEEKS ON/2WEEKS OFF)
     Route: 048
  3. XGEVA [Concomitant]

REACTIONS (3)
  - Osteonecrosis [Unknown]
  - Bone debridement [Unknown]
  - Tooth extraction [Unknown]
